FAERS Safety Report 20320107 (Version 1)
Quarter: 2022Q1

REPORT INFORMATION
  Report Type: Other
  Country: US (occurrence: None)
  Receive Date: 20220111
  Receipt Date: 20220111
  Transmission Date: 20220423
  Serious: No
  Sender: FDA-Public Use
  Company Number: US-ROCHE-2855042

PATIENT
  Age: 55 Year
  Sex: Male

DRUGS (7)
  1. RITUXIMAB [Suspect]
     Active Substance: RITUXIMAB
     Indication: Monoclonal gammopathy
     Route: 065
  2. RITUXIMAB [Suspect]
     Active Substance: RITUXIMAB
     Indication: Acquired Von Willebrand^s disease
  3. BORTEZOMIB [Concomitant]
     Active Substance: BORTEZOMIB
     Indication: Monoclonal gammopathy
  4. DEXAMETHASONE [Concomitant]
     Active Substance: DEXAMETHASONE
     Indication: Monoclonal gammopathy
  5. IBRUTINIB [Concomitant]
     Active Substance: IBRUTINIB
  6. BENDAMUSTINE [Concomitant]
     Active Substance: BENDAMUSTINE
     Indication: Acquired Von Willebrand^s disease
  7. LENALIDOMIDE [Concomitant]
     Active Substance: LENALIDOMIDE
     Indication: Acquired Von Willebrand^s disease

REACTIONS (2)
  - Drug ineffective [Unknown]
  - No adverse event [Unknown]
